FAERS Safety Report 17295722 (Version 2)
Quarter: 2020Q1

REPORT INFORMATION
  Report Type: Report from Study
  Country: None (occurrence: US)
  Receive Date: 20200121
  Receipt Date: 20200127
  Transmission Date: 20200409
  Serious: Yes (Hospitalization)
  Sender: FDA-Public Use
  Company Number: US-ABBVIE-20K-163-3225765-00

PATIENT
  Age: 65 Year
  Sex: Female

DRUGS (2)
  1. TYLENOL [Suspect]
     Active Substance: ACETAMINOPHEN
     Indication: PRODUCT USED FOR UNKNOWN INDICATION
     Route: 065
  2. HUMIRA [Suspect]
     Active Substance: ADALIMUMAB
     Indication: PSORIATIC ARTHROPATHY
     Route: 058
     Dates: start: 20191216, end: 20191229

REACTIONS (15)
  - Dysstasia [Unknown]
  - Gait disturbance [Unknown]
  - Hypertension [Unknown]
  - Hepatic enzyme increased [Unknown]
  - Abdominal discomfort [Unknown]
  - Gallbladder disorder [Unknown]
  - Migraine [Unknown]
  - Blood potassium decreased [Unknown]
  - Electrolyte imbalance [Unknown]
  - Diarrhoea [Unknown]
  - Vomiting [Recovered/Resolved with Sequelae]
  - Toxicity to various agents [Unknown]
  - Haematuria [Unknown]
  - Myocardial necrosis marker increased [Unknown]
  - Muscle injury [Unknown]

NARRATIVE: CASE EVENT DATE: 202001
